FAERS Safety Report 21596522 (Version 2)
Quarter: 2022Q4

REPORT INFORMATION
  Report Type: Report from Study
  Country: RU (occurrence: RU)
  Receive Date: 20221115
  Receipt Date: 20221116
  Transmission Date: 20230113
  Serious: Yes (Other)
  Sender: FDA-Public Use
  Company Number: RU-002147023-NVSC2022RU211914

PATIENT
  Age: 56 Year
  Sex: Female

DRUGS (2)
  1. RIBOCICLIB SUCCINATE [Suspect]
     Active Substance: RIBOCICLIB SUCCINATE
     Indication: Breast cancer
     Dosage: 600 MG, QD
     Route: 048
     Dates: start: 202207
  2. ANASTROZOLE [Concomitant]
     Active Substance: ANASTROZOLE
     Indication: Product used for unknown indication
     Dosage: 1 MG, QD
     Route: 065

REACTIONS (6)
  - Chronic gastritis [Recovered/Resolved]
  - White blood cell count decreased [Unknown]
  - Basophil count decreased [Recovering/Resolving]
  - Dysgeusia [Unknown]
  - Blood thyroid stimulating hormone decreased [Unknown]
  - Blood calcium decreased [Recovering/Resolving]

NARRATIVE: CASE EVENT DATE: 20220822
